FAERS Safety Report 15608372 (Version 1)
Quarter: 2018Q4

REPORT INFORMATION
  Report Type: Spontaneous
  Country: US (occurrence: US)
  Receive Date: 20181112
  Receipt Date: 20181112
  Transmission Date: 20190205
  Serious: Yes (Hospitalization)
  Sender: FDA-Public Use
  Company Number: None

PATIENT
  Sex: Female

DRUGS (9)
  1. BEXAROTENE. [Suspect]
     Active Substance: BEXAROTENE
     Indication: MYCOSIS FUNGOIDES
     Route: 048
     Dates: start: 20180630
  2. DILTIAZEM. [Concomitant]
     Active Substance: DILTIAZEM
  3. FENOFIBRATE. [Concomitant]
     Active Substance: FENOFIBRATE
  4. LEVOTHYROXIN [Concomitant]
     Active Substance: LEVOTHYROXINE
  5. ATORVASTATIN [Concomitant]
     Active Substance: ATORVASTATIN
  6. PRADAXA [Concomitant]
     Active Substance: DABIGATRAN ETEXILATE MESYLATE
  7. OMEPRAZOLE. [Concomitant]
     Active Substance: OMEPRAZOLE
  8. GABAPENTIN. [Concomitant]
     Active Substance: GABAPENTIN
  9. MONTELUKAST [Concomitant]
     Active Substance: MONTELUKAST SODIUM

REACTIONS (1)
  - Pulmonary congestion [None]
